FAERS Safety Report 23209961 (Version 1)
Quarter: 2023Q4

REPORT INFORMATION
  Report Type: Spontaneous
  Country: MY (occurrence: MY)
  Receive Date: 20231121
  Receipt Date: 20231121
  Transmission Date: 20240110
  Serious: Yes (Other)
  Sender: FDA-Public Use
  Company Number: MY-STRIDES ARCOLAB LIMITED-2023SP017227

PATIENT
  Age: 8 Decade
  Sex: Female

DRUGS (4)
  1. ETOPOSIDE [Suspect]
     Active Substance: ETOPOSIDE
     Indication: Neuroendocrine carcinoma of the cervix
     Dosage: 100 MILLIGRAM, BID (REPEATED EVERY 28 DAYS)
     Route: 048
     Dates: start: 201705, end: 201910
  2. CISPLATIN [Suspect]
     Active Substance: CISPLATIN
     Indication: Neuroendocrine carcinoma of the cervix
     Dosage: UNK
     Route: 065
     Dates: start: 201602
  3. IRINOTECAN HYDROCHLORIDE [Suspect]
     Active Substance: IRINOTECAN HYDROCHLORIDE
     Indication: Neuroendocrine carcinoma of the cervix
     Dosage: UNK
     Route: 065
     Dates: start: 201602
  4. ZOLEDRONIC ACID [Suspect]
     Active Substance: ZOLEDRONIC ACID
     Indication: Neuroendocrine carcinoma of the cervix
     Dosage: UNK
     Route: 065
     Dates: start: 201612

REACTIONS (8)
  - Gastrointestinal haemorrhage [Unknown]
  - Deep vein thrombosis [Unknown]
  - Condition aggravated [Unknown]
  - Pulmonary embolism [Unknown]
  - Decreased appetite [Unknown]
  - Alopecia [Unknown]
  - Somnolence [Unknown]
  - Off label use [Unknown]

NARRATIVE: CASE EVENT DATE: 20200801
